FAERS Safety Report 25020785 (Version 4)
Quarter: 2025Q2

REPORT INFORMATION
  Report Type: Report from Study
  Country: US (occurrence: US)
  Receive Date: 20250227
  Receipt Date: 20250604
  Transmission Date: 20250716
  Serious: Yes (Other)
  Sender: ABBVIE
  Company Number: US-ABBVIE-6150929

PATIENT
  Age: 73 Year
  Sex: Female
  Weight: 72.574 kg

DRUGS (14)
  1. SKYRIZI [Suspect]
     Active Substance: RISANKIZUMAB-RZAA
     Indication: Pustular psoriasis
     Dosage: FORM STRENGTH: 150 MG
     Route: 058
     Dates: start: 2022
  2. SKYRIZI [Suspect]
     Active Substance: RISANKIZUMAB-RZAA
     Indication: Psoriasis
  3. HYDROCHLOROTHIAZIDE [Concomitant]
     Active Substance: HYDROCHLOROTHIAZIDE
     Indication: Hypertension
  4. PANTOPRAZOLE [Concomitant]
     Active Substance: PANTOPRAZOLE
     Indication: Gastrointestinal disorder
  5. XANAX [Concomitant]
     Active Substance: ALPRAZOLAM
     Indication: Anxiety
  6. GABAPENTIN [Concomitant]
     Active Substance: GABAPENTIN
     Indication: Pain
  7. ADEMETIONINE [Concomitant]
     Active Substance: ADEMETIONINE
     Indication: Supplementation therapy
  8. Biotin;Zinc [Concomitant]
     Indication: Supplementation therapy
  9. LUTEIN [Concomitant]
     Active Substance: LUTEIN
     Indication: Supplementation therapy
  10. ACIDOPHILUS [Concomitant]
     Active Substance: LACTOBACILLUS ACIDOPHILUS
     Indication: Supplementation therapy
  11. NICOTINIC ACID [Concomitant]
     Active Substance: NIACIN
     Indication: Supplementation therapy
  12. MECLIZINE [Concomitant]
     Active Substance: MECLIZINE HYDROCHLORIDE
     Indication: Vertigo positional
  13. CALCIUM [Concomitant]
     Active Substance: CALCIUM
     Indication: Mineral supplementation
  14. LORATADINE [Concomitant]
     Active Substance: LORATADINE
     Indication: Multiple allergies

REACTIONS (4)
  - Macular degeneration [Not Recovered/Not Resolved]
  - Neovascular age-related macular degeneration [Not Recovered/Not Resolved]
  - Vitreous floaters [Recovering/Resolving]
  - Hypotension [Unknown]

NARRATIVE: CASE EVENT DATE: 20250101
